FAERS Safety Report 19831050 (Version 1)
Quarter: 2021Q3

REPORT INFORMATION
  Report Type: Report from Study
  Country: US (occurrence: US)
  Receive Date: 20210915
  Receipt Date: 20210915
  Transmission Date: 20211014
  Serious: Yes (Hospitalization)
  Sender: FDA-Public Use
  Company Number: US-ROCHE-2908463

PATIENT
  Age: 58 Year
  Sex: Male
  Weight: 97.5 kg

DRUGS (3)
  1. IBRUTINIB [Suspect]
     Active Substance: IBRUTINIB
     Indication: CHRONIC LYMPHOCYTIC LEUKAEMIA
     Dosage: ON DAYS 1?28, CYCLES 1?19?ON 18/AUG/2021, HE RECEIVED THE SUBSEQUENT DOSE OF IBRUTINIB.
     Route: 048
     Dates: start: 20200219
  2. OBINUTUZUMAB. [Suspect]
     Active Substance: OBINUTUZUMAB
     Indication: CHRONIC LYMPHOCYTIC LEUKAEMIA
     Dosage: ON DAY 1, CYCLE 1?ON 07/JUL/2020, HE RECEIVED THE MOST RECENT DOSE OF OBINUTUZUMAB PRIOR TO EVENT ON
     Route: 042
     Dates: start: 20200219
  3. VENETOCLAX. [Suspect]
     Active Substance: VENETOCLAX
     Indication: CHRONIC LYMPHOCYTIC LEUKAEMIA
     Dosage: 1?7 CYCLE 3?ON 15/MAR/2021,HE RECEIVED THE MOST RECENT DOSE OF VENETOCLAX PRIOR TO EVENT ONSET.?50 M
     Route: 048
     Dates: start: 20200219

REACTIONS (1)
  - COVID-19 [Not Recovered/Not Resolved]

NARRATIVE: CASE EVENT DATE: 20210817
